FAERS Safety Report 5586354-1 (Version None)
Quarter: 2008Q1

REPORT INFORMATION
  Report Type: 
  Country: None (occurrence: None)
  Receive Date: 20080107
  Receipt Date: 20080107
  Transmission Date: 20080703
  Serious: Yes (Hospitalization)
  Sender: FDA-Public Use
  Company Number: None

PATIENT
  Sex: Male
  Weight: 83.6 kg

DRUGS (3)
  1. BEVACIZUMAB (RHUMAB VEGF) [Suspect]
     Dosage: 1200 MG
     Dates: end: 20071120
  2. ELOXATIN [Suspect]
     Dosage: 508 MG
     Dates: end: 20071204
  3. FLUOROURACIL [Suspect]
     Dosage: 21936 MG
     Dates: end: 20071204

REACTIONS (1)
  - COLONIC STENOSIS [None]
